FAERS Safety Report 5874143-X (Version None)
Quarter: 2008Q3

REPORT INFORMATION
  Report Type: 
  Country: None (occurrence: None)
  Receive Date: 20080905
  Receipt Date: 20080905
  Transmission Date: 20090109
  Serious: Yes (Other)
  Sender: FDA-Public Use
  Company Number: None

PATIENT
  Age: 28 Year
  Sex: Female
  Weight: 58.9676 kg

DRUGS (1)
  1. LEXAPRO [Suspect]
     Indication: DEPRESSION
     Dosage: 20MG DAILY PO
     Route: 048
     Dates: start: 20070815, end: 20080615

REACTIONS (16)
  - DECREASED APPETITE [None]
  - DIZZINESS [None]
  - HYPOAESTHESIA [None]
  - INFECTION [None]
  - INSOMNIA [None]
  - METABOLIC DISORDER [None]
  - MUSCLE TIGHTNESS [None]
  - MUSCLE TWITCHING [None]
  - MYALGIA [None]
  - NERVOUS SYSTEM DISORDER [None]
  - NEUROPATHY PERIPHERAL [None]
  - PALPITATIONS [None]
  - PARAESTHESIA [None]
  - RESTLESS LEGS SYNDROME [None]
  - TREMOR [None]
  - WEIGHT DECREASED [None]
